FAERS Safety Report 8905716 (Version 1)
Quarter: 2012Q4

REPORT INFORMATION
  Report Type: 
  Country: US (occurrence: US)
  Receive Date: 20121113
  Receipt Date: 20121113
  Transmission Date: 20130627
  Serious: Yes (Other)
  Sender: FDA-Public Use
  Company Number: US-009507513-2011SP052427

PATIENT
  Age: 41 Year
  Sex: Female
  Weight: 78 kg

DRUGS (22)
  1. TEMOZOLOMIDE [Suspect]
     Indication: OVARIAN CANCER
     Dosage: ON DAYS 1 - 5 OF EACH 28 DAY CYCLE
     Route: 048
     Dates: start: 20101111
  2. VELIPARIB [Suspect]
     Indication: OVARIAN CANCER
     Dosage: 40 mg, on days 1-7 of each 28 days cycle
     Route: 048
     Dates: start: 20101111
  3. DOXORUBICIN HYDROCHLORIDE [Suspect]
     Indication: SQUAMOUS CELL CARCINOMA
     Dosage: 50 mg/m2, on day 1 of each 28 day cycle
     Route: 042
     Dates: start: 20100901, end: 20100901
  4. DOXORUBICIN HYDROCHLORIDE [Suspect]
     Indication: OVARIAN CANCER
     Dosage: 50 mg/m2,on day 1 of each 28 day cycle
     Route: 042
     Dates: start: 20100929, end: 20100929
  5. LISINOPRIL [Concomitant]
     Indication: HYPERTENSION
     Dosage: 5 mg, QD
     Route: 065
     Dates: start: 20100723, end: 20101124
  6. HYDROCHLOROTHIAZIDE [Concomitant]
     Indication: HYPERTENSION
     Dosage: 25 mg, QD
     Route: 065
     Dates: start: 200803, end: 20101215
  7. POTASSIUM (UNSPECIFIED) [Concomitant]
     Indication: MINERAL SUPPLEMENTATION
     Dosage: 20 mg, bid
     Route: 065
     Dates: start: 201007, end: 20101215
  8. OXYCODONE [Concomitant]
     Indication: PROCEDURAL PAIN
     Dosage: 5 mg, PRN
     Route: 065
     Dates: start: 201005, end: 20101020
  9. VITAMINS (UNSPECIFIED) [Concomitant]
     Indication: SUPPLEMENTATION THERAPY
     Dosage: 1 TABLET
     Route: 065
     Dates: start: 2004
  10. ASCORBIC ACID (+) BIOFLAVONOIDS [Concomitant]
     Indication: MEDICAL DIET
     Dosage: 1 TABLET
     Route: 065
     Dates: start: 2004
  11. ONDANSETRON [Concomitant]
     Indication: NAUSEA
     Dosage: 8 mg, PRN
     Route: 065
     Dates: start: 200909
  12. CORRECTOL [Concomitant]
     Indication: CONSTIPATION
     Dosage: 50 mg, PRN
     Route: 065
     Dates: start: 200709
  13. COMPAZINE [Concomitant]
     Indication: PROPHYLAXIS OF NAUSEA AND VOMITING
     Dosage: 10 mg, PRN
     Route: 065
     Dates: start: 20100901
  14. DEXAMETHASONE ACETATE [Concomitant]
     Indication: ANAEMIA PROPHYLAXIS
     Dosage: 10 mg, PRN
     Route: 065
     Dates: start: 20100901
  15. HYDRO.C.SOD.SUC. [Concomitant]
     Indication: PROPHYLAXIS
     Dosage: 100 mg, QD
     Route: 065
     Dates: start: 20100901
  16. ATIVAN [Concomitant]
     Indication: PROPHYLAXIS OF NAUSEA AND VOMITING
     Dosage: 0.5 mg, prn
     Route: 065
     Dates: start: 20100901
  17. ZOFRAN [Concomitant]
     Indication: NAUSEA
     Dosage: 8 mg, PRN
     Route: 065
     Dates: start: 20100908, end: 20110810
  18. ZOFRAN [Concomitant]
     Dosage: 4 mg, qd
     Dates: start: 20110820
  19. ACETAMINOPHEN (+) CODEINE PHOSPHATE [Concomitant]
     Indication: PAIN
     Dosage: PAIN FOR HAND-FOOT SYNDROME AND HEADACHES
     Route: 065
     Dates: start: 20101020, end: 20110406
  20. POLYETHYLENE GLYCOL [Concomitant]
     Indication: CONSTIPATION
     Dosage: 2 ml, PRN
     Route: 065
     Dates: start: 20101117
  21. ACYCLOVIR SODIUM [Concomitant]
     Indication: HERPES ZOSTER
     Dosage: 5 TIMES A DAY
     Route: 065
     Dates: start: 20110827
  22. BENADRYL [Concomitant]
     Indication: HERPES ZOSTER
     Dosage: 25 mg, QD
     Route: 065
     Dates: start: 20110907, end: 20111012

REACTIONS (2)
  - Squamous cell carcinoma [Recovered/Resolved]
  - Off label use [Unknown]
